FAERS Safety Report 25196367 (Version 1)
Quarter: 2025Q2

REPORT INFORMATION
  Report Type: Spontaneous
  Country: NO (occurrence: NO)
  Receive Date: 20250415
  Receipt Date: 20250415
  Transmission Date: 20250716
  Serious: Yes (Other)
  Sender: MERCK SHARP AND DOHME
  Company Number: NO-009507513-2274388

PATIENT
  Age: 18 Month
  Sex: Female

DRUGS (2)
  1. M-M-RVAXPRO [Suspect]
     Active Substance: MEASLES VIRUS STRAIN ENDERS^ ATTENUATED EDMONSTON LIVE ANTIGEN\MUMPS VIRUS STRAIN B LEVEL JERYL LYNN
     Indication: Prophylaxis
     Dates: start: 202306, end: 202306
  2. M-M-RVAXPRO [Suspect]
     Active Substance: MEASLES VIRUS STRAIN ENDERS^ ATTENUATED EDMONSTON LIVE ANTIGEN\MUMPS VIRUS STRAIN B LEVEL JERYL LYNN
     Dates: start: 202306, end: 202306

REACTIONS (7)
  - Autism spectrum disorder [Unknown]
  - Lethargy [Unknown]
  - Pyrexia [Unknown]
  - Rash erythematous [Recovering/Resolving]
  - Apathy [Unknown]
  - Speech disorder developmental [Unknown]
  - Personality change [Unknown]

NARRATIVE: CASE EVENT DATE: 20230601
